FAERS Safety Report 4976274-5 (Version None)
Quarter: 2006Q2

REPORT INFORMATION
  Report Type: 
  Country: None (occurrence: None)
  Receive Date: 20060412
  Receipt Date: 20060331
  Transmission Date: 20061013
  Serious: Yes (Other)
  Sender: FDA-Public Use
  Company Number: 2006044366

PATIENT
  Age: 54 Year
  Sex: Female

DRUGS (1)
  1. NICORETTE [Suspect]
     Dosage: NASAL
     Route: 045
     Dates: start: 20060327

REACTIONS (5)
  - ANAPHYLACTIC SHOCK [None]
  - ERYTHEMA [None]
  - HEART RATE INCREASED [None]
  - HYPERTENSION [None]
  - PRURITUS [None]
